FAERS Safety Report 24434535 (Version 1)
Quarter: 2024Q4

REPORT INFORMATION
  Report Type: Spontaneous
  Country: CO (occurrence: CO)
  Receive Date: 20241014
  Receipt Date: 20241014
  Transmission Date: 20250114
  Serious: Yes (Hospitalization, Other)
  Sender: SANDOZ
  Company Number: CO-002147023-NVSC2022CO196717

PATIENT
  Sex: Female

DRUGS (6)
  1. FLUOXETINE [Suspect]
     Active Substance: FLUOXETINE HYDROCHLORIDE
     Indication: Anxiety
     Dosage: 20 MG
     Route: 065
  2. FLUOXETINE [Suspect]
     Active Substance: FLUOXETINE HYDROCHLORIDE
     Indication: Depression
  3. GILENYA [Suspect]
     Active Substance: FINGOLIMOD HYDROCHLORIDE
     Indication: Multiple sclerosis
     Dosage: 0.5 MG, QD, BY MOUTH
     Route: 048
  4. GILENYA [Suspect]
     Active Substance: FINGOLIMOD HYDROCHLORIDE
     Dosage: 0.5 MG
     Route: 065
     Dates: start: 202004
  5. LOSARTAN [Suspect]
     Active Substance: LOSARTAN
     Indication: Blood pressure measurement
     Dosage: 50 MG, QD
     Route: 065
  6. LOVASTATIN [Suspect]
     Active Substance: LOVASTATIN
     Indication: Blood cholesterol
     Dosage: 20 MG, QD
     Route: 065

REACTIONS (9)
  - Illness [Recovering/Resolving]
  - Paralysis [Unknown]
  - Bronchitis chronic [Recovering/Resolving]
  - Limb discomfort [Recovering/Resolving]
  - Paraesthesia [Recovering/Resolving]
  - Mobility decreased [Unknown]
  - Gait disturbance [Unknown]
  - Respiratory disorder [Unknown]
  - Product dispensing issue [Unknown]

NARRATIVE: CASE EVENT DATE: 20200101
